FAERS Safety Report 9998330 (Version 6)
Quarter: 2014Q3

REPORT INFORMATION
  Report Type: Report from Study
  Country: AU (occurrence: AU)
  Receive Date: 20140312
  Receipt Date: 20140707
  Transmission Date: 20150326
  Serious: Yes (Other)
  Sender: FDA-Public Use
  Company Number: AU-ROCHE-1321165

PATIENT
  Sex: Female
  Weight: 76 kg

DRUGS (2)
  1. ACTEMRA [Suspect]
     Active Substance: TOCILIZUMAB
     Indication: RHEUMATOID ARTHRITIS
     Route: 042
     Dates: start: 20110311
  2. ACTEMRA [Suspect]
     Active Substance: TOCILIZUMAB
     Route: 042

REACTIONS (6)
  - Liver disorder [Unknown]
  - C-reactive protein increased [Unknown]
  - Limb injury [Unknown]
  - Skin ulcer [Not Recovered/Not Resolved]
  - Localised infection [Unknown]
  - Cellulitis [Not Recovered/Not Resolved]
